FAERS Safety Report 8318403-1 (Version None)
Quarter: 2012Q2

REPORT INFORMATION
  Report Type: 
  Country: None (occurrence: None)
  Receive Date: 20120427
  Receipt Date: 20120418
  Transmission Date: 20120825
  Serious: Yes (Hospitalization, Other)
  Sender: FDA-Public Use
  Company Number: GB-JNJFOC-20120408064

PATIENT
  Age: 92 Year

DRUGS (5)
  1. ACETAMINOPHEN AND CODEINE PHOSPHATE [Concomitant]
     Indication: PAIN
     Dosage: 2DF, AT A DOSE 30/500MG, TO BE TAKEN 4 TIMES A DAY WHEN REQUIRED
     Route: 048
  2. TELMISARTAN [Concomitant]
     Indication: HYPERTENSION
     Route: 048
  3. IBUPROFEN [Suspect]
     Indication: PRODUCT USED FOR UNKNOWN INDICATION
     Dosage: 200MG, 3 DOSAGES IN A DAY
     Route: 048
     Dates: start: 20120320
  4. ATENOLOL [Concomitant]
     Indication: ATRIAL FIBRILLATION
     Route: 048
  5. IBUPROFEN [Suspect]
     Route: 048

REACTIONS (1)
  - DIARRHOEA [None]
